FAERS Safety Report 19060897 (Version 2)
Quarter: 2021Q2

REPORT INFORMATION
  Report Type: Report from Study
  Country: CN (occurrence: CN)
  Receive Date: 20210325
  Receipt Date: 20210413
  Transmission Date: 20210717
  Serious: Yes (Other)
  Sender: FDA-Public Use
  Company Number: CN-GLAXOSMITHKLINE-CN2021GSK069234

PATIENT
  Age: 56 Year
  Sex: Male

DRUGS (8)
  1. LAMIVUDINE. [Suspect]
     Active Substance: LAMIVUDINE
     Indication: CHRONIC HEPATITIS C
     Dosage: UNK
     Dates: start: 200612, end: 200703
  2. ENTECAVIR. [Suspect]
     Active Substance: ENTECAVIR
     Indication: CHRONIC HEPATITIS C
     Dosage: UNK
     Dates: start: 200707, end: 200905
  3. ADEFOVIR DIPIVOXIL. [Suspect]
     Active Substance: ADEFOVIR DIPIVOXIL
     Dosage: UNK
     Dates: start: 200905, end: 201101
  4. ADEFOVIR DIPIVOXIL. [Suspect]
     Active Substance: ADEFOVIR DIPIVOXIL
     Dosage: UNK
     Dates: start: 201208, end: 201502
  5. ENTECAVIR. [Suspect]
     Active Substance: ENTECAVIR
     Dosage: UNK
     Dates: start: 200905, end: 201101
  6. ENTECAVIR. [Suspect]
     Active Substance: ENTECAVIR
     Dosage: UNK
     Dates: start: 201208, end: 201502
  7. ENTECAVIR. [Suspect]
     Active Substance: ENTECAVIR
     Dosage: UNK
     Dates: start: 201101, end: 201208
  8. ADEFOVIR DIPIVOXIL. [Suspect]
     Active Substance: ADEFOVIR DIPIVOXIL
     Indication: CHRONIC HEPATITIS C
     Dosage: UNK
     Dates: start: 200703, end: 200707

REACTIONS (4)
  - Viral mutation identified [Unknown]
  - Pathogen resistance [Unknown]
  - Multiple-drug resistance [Unknown]
  - Therapeutic product effect incomplete [Unknown]
